FAERS Safety Report 16590763 (Version 2)
Quarter: 2019Q4

REPORT INFORMATION
  Report Type: Spontaneous
  Country: US (occurrence: US)
  Receive Date: 20190718
  Receipt Date: 20191025
  Transmission Date: 20200122
  Serious: Yes (Other)
  Sender: FDA-Public Use
  Company Number: US-TEVA-2019-US-1078780

PATIENT
  Age: 83 Year
  Sex: Female

DRUGS (1)
  1. ACTAVIS CLONAZEPAM [Suspect]
     Active Substance: CLONAZEPAM
     Indication: ANXIETY
     Dosage: ROUND, YELLOW, SCORED/R/34
     Dates: start: 201811

REACTIONS (13)
  - Cerebrovascular accident [Unknown]
  - Agitation [Unknown]
  - Restlessness [Unknown]
  - Depression [Unknown]
  - Anxiety [Unknown]
  - Fall [Unknown]
  - Gait disturbance [Unknown]
  - Accident [Unknown]
  - Drug ineffective [Unknown]
  - Product substitution issue [Unknown]
  - Insomnia [Unknown]
  - Balance disorder [Unknown]
  - Rib fracture [Unknown]
